FAERS Safety Report 18748652 (Version 2)
Quarter: 2021Q1

REPORT INFORMATION
  Report Type: Spontaneous
  Country: PL (occurrence: PL)
  Receive Date: 20210115
  Receipt Date: 20210211
  Transmission Date: 20210419
  Serious: Yes (Other)
  Sender: FDA-Public Use
  Company Number: PL-NOVOPROD-779959

PATIENT
  Sex: Male
  Weight: 3.43 kg

DRUGS (1)
  1. INSULATARD NPH HUMAN [Suspect]
     Active Substance: INSULIN HUMAN
     Indication: GESTATIONAL DIABETES
     Dosage: 34 IU FOR 3 WEEKS
     Route: 064
     Dates: end: 20201121

REACTIONS (4)
  - Neonatal asphyxia [Unknown]
  - Abnormal organ growth [Unknown]
  - Foetal exposure during pregnancy [Recovered/Resolved]
  - Cerebral haemorrhage neonatal [Unknown]

NARRATIVE: CASE EVENT DATE: 20201121
